FAERS Safety Report 17619758 (Version 1)
Quarter: 2020Q2

REPORT INFORMATION
  Report Type: Spontaneous
  Country: US (occurrence: US)
  Receive Date: 20200402
  Receipt Date: 20200402
  Transmission Date: 20200713
  Serious: No
  Sender: FDA-Public Use
  Company Number: US-GALDERMA-US19074032

PATIENT
  Age: 33 Year
  Sex: Female

DRUGS (13)
  1. PROACTIV EYE BRIGHTENING SERUM [Concomitant]
     Active Substance: COSMETICS
  2. PROACTIV GREEN TEA MOISTURIZER [Concomitant]
     Active Substance: COSMETICS
  3. PROACTIV MD BALANCING TONER [Concomitant]
     Active Substance: COSMETICS
  4. PROACTIV DAILY PROTECTION PLUS SUNSCREEN SPF 30 [Concomitant]
     Indication: ACNE
     Route: 061
     Dates: start: 20190920, end: 20191125
  5. PROACTIV DAILY PROTECTION PLUS SUNSCREEN SPF 30 [Concomitant]
  6. PROACTIV MD DEEP CLEANSING FACE WASH [Concomitant]
     Active Substance: COSMETICS
     Indication: ACNE
     Route: 061
     Dates: start: 20190920, end: 20191125
  7. PROACTIV MD ADAPALENE ACNE TREATMENT [Suspect]
     Active Substance: ADAPALENE
     Indication: ACNE
     Dosage: 0.1%
     Route: 061
     Dates: start: 20190920, end: 20191004
  8. MULTIVITAMIN [Concomitant]
     Active Substance: VITAMINS
  9. PROACTIV GREEN TEA MOISTURIZER [Concomitant]
     Active Substance: COSMETICS
     Indication: ACNE
     Route: 061
     Dates: start: 20190920, end: 20191125
  10. PROACTIV MD DEEP CLEANSING FACE WASH [Concomitant]
     Active Substance: COSMETICS
  11. PROACTIV MD ADAPALENE ACNE TREATMENT [Suspect]
     Active Substance: ADAPALENE
     Dosage: 0.1%
     Route: 061
     Dates: start: 20191004, end: 20191125
  12. PROACTIV EYE BRIGHTENING SERUM [Concomitant]
     Active Substance: COSMETICS
     Indication: ACNE
     Route: 061
     Dates: start: 20190920, end: 20191125
  13. PROACTIV MD BALANCING TONER [Concomitant]
     Active Substance: COSMETICS
     Indication: ACNE
     Route: 061
     Dates: start: 20190920, end: 20191125

REACTIONS (4)
  - Underdose [Recovered/Resolved]
  - Acne [Recovered/Resolved]
  - Dry skin [Recovered/Resolved]
  - Inappropriate schedule of product administration [Recovered/Resolved]

NARRATIVE: CASE EVENT DATE: 20191004
